FAERS Safety Report 7621101-0 (Version None)
Quarter: 2011Q3

REPORT INFORMATION
  Report Type: 
  Country: None (occurrence: None)
  Receive Date: 20110719
  Receipt Date: 20110408
  Transmission Date: 20111222
  Serious: No
  Sender: FDA-Public Use
  Company Number: US-KINGPHARMUSA00001-K201100417

PATIENT
  Age: 63 Year
  Sex: Female
  Weight: 70.295 kg

DRUGS (3)
  1. ZANTAC [Concomitant]
     Indication: GASTROOESOPHAGEAL REFLUX DISEASE
     Dosage: UNK
  2. LEVOXYL [Suspect]
     Indication: HYPOTHYROIDISM
     Dosage: 88 MCG, QAM
     Route: 048
     Dates: start: 20101123
  3. LEVOXYL [Suspect]
     Dosage: 110 MCG, QAM
     Route: 048
     Dates: end: 20101122

REACTIONS (5)
  - DIZZINESS [None]
  - NAUSEA [None]
  - MALAISE [None]
  - GASTRIC ULCER [None]
  - THROAT IRRITATION [None]
